FAERS Safety Report 4485846-6 (Version None)
Quarter: 2004Q4

REPORT INFORMATION
  Report Type: 
  Country: None (occurrence: None)
  Receive Date: 20041022
  Receipt Date: 20041014
  Transmission Date: 20050328
  Serious: Yes (Hospitalization)
  Sender: FDA-Public Use
  Company Number: 2004239540US

PATIENT
  Age: 58 Year
  Sex: Female
  Weight: 59 kg

DRUGS (4)
  1. XANAX [Suspect]
     Indication: PANIC DISORDER
     Dosage: 2 MG, TID, ORAL
     Route: 048
     Dates: start: 20030101
  2. ATENOLOL [Concomitant]
  3. PAMELOR [Concomitant]
  4. LORTAB [Concomitant]

REACTIONS (9)
  - DEHYDRATION [None]
  - DIARRHOEA [None]
  - DRUG WITHDRAWAL SYNDROME [None]
  - EATING DISORDER [None]
  - GASTRIC DISORDER [None]
  - INSOMNIA [None]
  - NAUSEA [None]
  - TREATMENT NONCOMPLIANCE [None]
  - VOMITING [None]
